FAERS Safety Report 7082842-X (Version None)
Quarter: 2010Q4

REPORT INFORMATION
  Report Type: 
  Country: None (occurrence: None)
  Receive Date: 20101026
  Receipt Date: 20101014
  Transmission Date: 20110411
  Serious: Yes (Other)
  Sender: FDA-Public Use
  Company Number: 020377

PATIENT
  Sex: Female

DRUGS (1)
  1. XUSAL (XUSAL) [Suspect]
     Indication: SKIN REACTION
     Dosage: (5 MG)

REACTIONS (6)
  - ANXIETY [None]
  - DRUG EXPOSURE DURING PREGNANCY [None]
  - DRUG WITHDRAWAL SYNDROME [None]
  - PREGNANCY [None]
  - PRURITUS [None]
  - SCRATCH [None]
